FAERS Safety Report 6906113-4 (Version None)
Quarter: 2010Q3

REPORT INFORMATION
  Report Type: 
  Country: None (occurrence: None)
  Receive Date: 20100804
  Receipt Date: 20100729
  Transmission Date: 20110219
  Serious: Yes (Life-Threatening, Hospitalization)
  Sender: FDA-Public Use
  Company Number: FR-WYE-G06477810

PATIENT
  Sex: Male

DRUGS (2)
  1. PIPERACILLIN AND TAZOBACTAM [Suspect]
     Route: 042
     Dates: start: 20100522, end: 20100523
  2. AMOXICILLIN [Suspect]
     Route: 042
     Dates: start: 20100519, end: 20100521

REACTIONS (5)
  - CIRCULATORY COLLAPSE [None]
  - DERMATITIS ALLERGIC [None]
  - EOSINOPHILIA [None]
  - PYREXIA [None]
  - RASH PRURITIC [None]
